FAERS Safety Report 10455481 (Version 1)
Quarter: 2014Q3

REPORT INFORMATION
  Report Type: Spontaneous
  Country: US (occurrence: None)
  Receive Date: 20140915
  Receipt Date: 20140915
  Transmission Date: 20150326
  Serious: Yes (Other)
  Sender: FDA-Public Use
  Company Number: None

PATIENT
  Age: 14 Year
  Sex: Male

DRUGS (1)
  1. ENBREL [Suspect]
     Active Substance: ETANERCEPT
     Indication: ARTHRITIS
     Route: 058
     Dates: start: 20140724, end: 20140912

REACTIONS (4)
  - Headache [None]
  - Middle insomnia [None]
  - Flushing [None]
  - Dehydration [None]

NARRATIVE: CASE EVENT DATE: 20140912
